FAERS Safety Report 25536918 (Version 1)
Quarter: 2025Q3

REPORT INFORMATION
  Report Type: Spontaneous
  Country: US (occurrence: US)
  Receive Date: 20250710
  Receipt Date: 20250710
  Transmission Date: 20251020
  Serious: No
  Sender: ROCHE
  Company Number: US-ROCHE-10000330579

PATIENT
  Sex: Female

DRUGS (3)
  1. ACTEMRA [Suspect]
     Active Substance: TOCILIZUMAB
     Indication: Rheumatoid arthritis
     Route: 058
     Dates: start: 202506
  2. ACTEMRA [Suspect]
     Active Substance: TOCILIZUMAB
  3. KEVZARA PEN [Concomitant]

REACTIONS (2)
  - Joint swelling [Unknown]
  - Arthralgia [Unknown]
